FAERS Safety Report 15967549 (Version 2)
Quarter: 2019Q1

REPORT INFORMATION
  Report Type: Report from Study
  Country: CA (occurrence: CA)
  Receive Date: 20190215
  Receipt Date: 20190218
  Transmission Date: 20190418
  Serious: Yes (Death, Hospitalization)
  Sender: FDA-Public Use
  Company Number: CA-BAYER-2019-009928

PATIENT
  Age: 76 Year
  Sex: Female

DRUGS (3)
  1. AMLODIPINE [Concomitant]
     Active Substance: AMLODIPINE BESYLATE
     Dosage: UNK
     Dates: end: 201901
  2. ADEMPAS [Suspect]
     Active Substance: RIOCIGUAT
     Indication: PULMONARY HYPERTENSION
     Dosage: 1.0 MG, TID
     Route: 048
     Dates: start: 20190107, end: 20190129
  3. ADEMPAS [Suspect]
     Active Substance: RIOCIGUAT
     Indication: PULMONARY HYPERTENSION

REACTIONS (11)
  - Dyspepsia [Recovering/Resolving]
  - Death [Fatal]
  - Vomiting [None]
  - Blood pressure diastolic decreased [None]
  - Dizziness [Recovered/Resolved]
  - Spinal pain [Not Recovered/Not Resolved]
  - Vaginal haemorrhage [Recovered/Resolved]
  - Hypotension [Unknown]
  - Pulmonary hypertension [Unknown]
  - Dyspepsia [Recovered/Resolved]
  - Pain [Unknown]

NARRATIVE: CASE EVENT DATE: 20190110
